FAERS Safety Report 10220442 (Version 2)
Quarter: 2014Q2

REPORT INFORMATION
  Report Type: Spontaneous
  Country: US (occurrence: US)
  Receive Date: 20140606
  Receipt Date: 20140620
  Transmission Date: 20141212
  Serious: Yes (Hospitalization)
  Sender: FDA-Public Use
  Company Number: US-BIOGENIDEC-2014BI051769

PATIENT
  Age: 76 Year
  Sex: Female

DRUGS (2)
  1. TECFIDERA [Suspect]
     Indication: PRODUCT USED FOR UNKNOWN INDICATION
     Route: 048
     Dates: start: 20130919, end: 20130926
  2. TECFIDERA [Suspect]
     Indication: PRODUCT USED FOR UNKNOWN INDICATION
     Route: 048
     Dates: start: 20130927

REACTIONS (3)
  - Foot fracture [Not Recovered/Not Resolved]
  - Fall [Recovered/Resolved]
  - Ankle fracture [Not Recovered/Not Resolved]
